FAERS Safety Report 7829056-0 (Version None)
Quarter: 2011Q4

REPORT INFORMATION
  Report Type: 
  Country: None (occurrence: None)
  Receive Date: 20111020
  Receipt Date: 20111006
  Transmission Date: 20120403
  Serious: Yes (Hospitalization, Other)
  Sender: FDA-Public Use
  Company Number: GB-TEVA-303981ISR

PATIENT
  Age: 55 Year
  Sex: Male
  Weight: 130 kg

DRUGS (8)
  1. AMIODARONE HCL [Suspect]
     Route: 042
     Dates: start: 20110920
  2. LIOTHYRONINE SODIUM [Concomitant]
     Route: 042
     Dates: start: 20110920
  3. ALFENTANIL [Concomitant]
     Dosage: 25MG/50ML
     Route: 042
     Dates: start: 20110920
  4. ADRENALIN IN OIL INJ [Concomitant]
     Dosage: 50MG/250ML
     Route: 042
     Dates: start: 20110920
  5. METHYLENE BLUE [Suspect]
     Indication: VASODILATION PROCEDURE
     Dosage: 2MG/KG OF A 1% SOLUTION
     Route: 042
     Dates: start: 20110921, end: 20110921
  6. ACETAMINOPHEN [Concomitant]
     Indication: ANALGESIC THERAPY
     Route: 042
     Dates: start: 20110920
  7. CORSODYL [Concomitant]
     Route: 061
     Dates: start: 20110920
  8. HYDROCORTISONE [Concomitant]
     Route: 042
     Dates: start: 20110920

REACTIONS (3)
  - CHROMATURIA [None]
  - OFF LABEL USE [None]
  - SKIN DISCOLOURATION [None]
